FAERS Safety Report 11078385 (Version 1)
Quarter: 2015Q2

REPORT INFORMATION
  Report Type: Spontaneous
  Country: IT (occurrence: None)
  Receive Date: 20150428
  Receipt Date: 20150428
  Transmission Date: 20150821
  Serious: Yes (Other)
  Sender: FDA-Public Use
  Company Number: FK201501887

PATIENT
  Age: 66 Year
  Sex: Male
  Weight: 90 kg

DRUGS (1)
  1. OXALIPLATIN 5MG/ML CONCENTRATE FOR SOLUTION FOR INFUSION (OXALIPLATIN) (OXALIPLATIN) [Suspect]
     Active Substance: OXALIPLATIN
     Indication: GASTRIC CANCER
     Dosage: CYCLICAL
     Route: 042
     Dates: start: 20141029, end: 20150319

REACTIONS (5)
  - Bradycardia [None]
  - Hyperhidrosis [None]
  - Pallor [None]
  - Presyncope [None]
  - Hypotension [None]

NARRATIVE: CASE EVENT DATE: 20150319
